FAERS Safety Report 15138349 (Version 2)
Quarter: 2024Q2

REPORT INFORMATION
  Report Type: Spontaneous
  Country: ES (occurrence: ES)
  Receive Date: 20180713
  Receipt Date: 20240404
  Transmission Date: 20240716
  Serious: Yes (Life-Threatening, Hospitalization)
  Sender: FDA-Public Use
  Company Number: ES-AUROBINDO-AUR-APL-2018-035371

PATIENT
  Age: 87 Year
  Sex: Male

DRUGS (6)
  1. FENTANYL [Interacting]
     Active Substance: FENTANYL\FENTANYL CITRATE
     Indication: Arthralgia
     Dosage: 8.5 MICROGRAM, UNK
     Route: 062
     Dates: start: 20160226, end: 20161007
  2. GABAPENTIN [Interacting]
     Active Substance: GABAPENTIN
     Indication: Product used for unknown indication
     Dosage: 600 MILLIGRAM, DAILY
     Route: 048
     Dates: start: 201606, end: 20161007
  3. DIAZEPAM [Interacting]
     Active Substance: DIAZEPAM
     Indication: Product used for unknown indication
     Dosage: 2.5 MILLIGRAM, DAILY
     Route: 048
     Dates: start: 20160706, end: 20161007
  4. DILTIAZEM HYDROCHLORIDE [Concomitant]
     Active Substance: DILTIAZEM HYDROCHLORIDE
     Indication: Arrhythmia
     Dosage: 120 MILLIGRAM, DAILY
     Route: 048
     Dates: start: 20141103
  5. FUROSEMIDE [Concomitant]
     Active Substance: FUROSEMIDE
     Indication: Hypertension
     Dosage: 60 MILLIGRAM, DAILY
     Route: 048
     Dates: start: 201112
  6. ELIQUIS [Concomitant]
     Active Substance: APIXABAN
     Indication: Thrombosis prophylaxis
     Dosage: 5 MILLIGRAM, DAILY
     Route: 048
     Dates: start: 20160301, end: 20161017

REACTIONS (1)
  - Confusional state [Recovered/Resolved]

NARRATIVE: CASE EVENT DATE: 20161005
